FAERS Safety Report 7020696-8 (Version None)
Quarter: 2010Q3

REPORT INFORMATION
  Report Type: 
  Country: None (occurrence: None)
  Receive Date: 20100929
  Receipt Date: 20100921
  Transmission Date: 20110219
  Serious: Yes (Other)
  Sender: FDA-Public Use
  Company Number: PHHY2010CA63086

PATIENT
  Sex: Male

DRUGS (1)
  1. CLOZARIL [Suspect]
     Dosage: 75 MG, UNK
     Route: 048
     Dates: start: 20100802, end: 20100821

REACTIONS (4)
  - CONSTIPATION [None]
  - DOLICHOCOLON [None]
  - FAECALOMA [None]
  - INTESTINAL OBSTRUCTION [None]
